FAERS Safety Report 4683211-X (Version None)
Quarter: 2005Q2

REPORT INFORMATION
  Report Type: 
  Country: None (occurrence: None)
  Receive Date: 20050602
  Receipt Date: 20050308
  Transmission Date: 20051028
  Serious: No
  Sender: FDA-Public Use
  Company Number: USA050189152

PATIENT
  Age: 81 Year
  Sex: Female

DRUGS (4)
  1. CYMBALTA [Suspect]
     Indication: FIBROMYALGIA
     Dosage: 30 MG/1 DAY
     Dates: start: 20050120
  2. WELLBUTRIN [Concomitant]
  3. AMBIEN [Concomitant]
  4. ANTIHYPERTENSIVE [Concomitant]

REACTIONS (4)
  - DIARRHOEA [None]
  - FATIGUE [None]
  - FLATULENCE [None]
  - HYPERSOMNIA [None]
